FAERS Safety Report 6800840-5 (Version None)
Quarter: 2010Q2

REPORT INFORMATION
  Report Type: 
  Country: None (occurrence: None)
  Receive Date: 20100629
  Receipt Date: 20100617
  Transmission Date: 20101027
  Serious: Yes (Death, Hospitalization)
  Sender: FDA-Public Use
  Company Number: GB-BRISTOL-MYERS SQUIBB COMPANY-15150881

PATIENT
  Age: 70 Year
  Sex: Female

DRUGS (24)
  1. METFORMIN HCL [Suspect]
     Indication: TYPE 2 DIABETES MELLITUS
     Route: 048
  2. CIPROFLOXACIN [Suspect]
     Indication: BACTERAEMIA
  3. THEOPHYLLINE [Suspect]
     Indication: BRONCHITIS CHRONIC
     Route: 048
  4. ASPIRIN [Suspect]
     Indication: MYOCARDIAL ISCHAEMIA
  5. ASPIRIN [Suspect]
     Indication: HYPERTENSION
  6. AMIKACIN [Suspect]
     Indication: BACTERAEMIA
  7. HYDROCORTISONE [Suspect]
     Indication: TOXIC EPIDERMAL NECROLYSIS
  8. AMITRIPTYLINE [Suspect]
     Indication: DEPRESSION
     Route: 048
  9. CITALOPRAM [Suspect]
     Indication: DEPRESSION
  10. VERAPAMIL [Suspect]
     Indication: HYPERTENSION
  11. ENALAPRIL MALEATE [Suspect]
     Indication: HYPERTENSION
  12. SIMVASTATIN [Suspect]
     Indication: HYPERLIPIDAEMIA
  13. FUROSEMIDE [Suspect]
     Indication: HYPERTENSION
  14. OMEPRAZOLE [Suspect]
  15. VANCOMYCIN [Suspect]
     Indication: BACTERAEMIA
  16. LEVOFLOXACIN [Suspect]
     Indication: BACTERAEMIA
  17. AMPICILLIN SODIUM/SULBACTAM SODIUM [Suspect]
     Indication: BACTERAEMIA
  18. PIPERACILLIN + TAZOBACTUM [Suspect]
     Indication: BACTERAEMIA
  19. CEFTRIAXONE [Suspect]
     Indication: PNEUMONIA
  20. GLYBURIDE [Suspect]
     Indication: TYPE 2 DIABETES MELLITUS
     Route: 048
  21. IMMUNE GLOBULIN INTRAVENOUS (HUMAN) [Suspect]
     Route: 042
  22. DEXTROSE 5% [Concomitant]
     Indication: HYPOGLYCAEMIA
     Route: 042
  23. MAGNESIUM SULFATE [Concomitant]
     Indication: HYPOMAGNESAEMIA
  24. LATANOPROST [Concomitant]
     Dosage: EYE DROPS
     Route: 047

REACTIONS (5)
  - ACUTE RESPIRATORY DISTRESS SYNDROME [None]
  - BACTERIAL INFECTION [None]
  - HAEMORRHAGE INTRACRANIAL [None]
  - HYPOGLYCAEMIA [None]
  - TOXIC EPIDERMAL NECROLYSIS [None]
